FAERS Safety Report 7072267-5 (Version None)
Quarter: 2010Q4

REPORT INFORMATION
  Report Type: 
  Country: None (occurrence: None)
  Receive Date: 20101029
  Receipt Date: 20091228
  Transmission Date: 20110411
  Serious: No
  Sender: FDA-Public Use
  Company Number: A0837183A

PATIENT
  Age: 50 Year
  Sex: Female

DRUGS (8)
  1. ADVAIR DISKUS 100/50 [Suspect]
     Indication: ASTHMA
     Dosage: 1PUFF TWICE PER DAY
     Route: 055
     Dates: start: 20050101
  2. EVISTA [Concomitant]
  3. MULTI-VITAMIN [Concomitant]
  4. ASCORBIC ACID [Concomitant]
  5. VITAMIN E [Concomitant]
  6. CALCIUM + VITAMIN D [Concomitant]
  7. VITAMIN B-12 [Concomitant]
  8. COLD MEDICATION [Concomitant]

REACTIONS (6)
  - CONTUSION [None]
  - COUGH [None]
  - HEADACHE [None]
  - PRURITUS [None]
  - RASH [None]
  - URTICARIA [None]
